FAERS Safety Report 7809448-6 (Version None)
Quarter: 2011Q4

REPORT INFORMATION
  Report Type: 
  Country: None (occurrence: None)
  Receive Date: 20111012
  Receipt Date: 20110930
  Transmission Date: 20120403
  Serious: Yes (Hospitalization)
  Sender: FDA-Public Use
  Company Number: JP-UCBSA-034521

PATIENT
  Age: 6 Year
  Sex: Female
  Weight: 23 kg

DRUGS (4)
  1. LAMICTAL [Concomitant]
     Route: 048
  2. LEXIN [Suspect]
     Indication: FRONTAL LOBE EPILEPSY
     Route: 048
     Dates: start: 20110208, end: 20110430
  3. TOPIRAMATE [Suspect]
     Indication: FRONTAL LOBE EPILEPSY
     Route: 048
     Dates: start: 20110418, end: 20110430
  4. KEPPRA [Suspect]
     Indication: FRONTAL LOBE EPILEPSY
     Route: 048
     Dates: start: 20110322, end: 20110423

REACTIONS (2)
  - MOUTH ULCERATION [None]
  - DRUG ERUPTION [None]
